FAERS Safety Report 13087117 (Version 2)
Quarter: 2017Q1

REPORT INFORMATION
  Report Type: Report from Study
  Country: None (occurrence: US)
  Receive Date: 20170105
  Receipt Date: 20170120
  Transmission Date: 20170428
  Serious: Yes (Hospitalization, Other)
  Sender: FDA-Public Use
  Company Number: US-ABBVIE-16K-163-1779719-00

PATIENT
  Sex: Female

DRUGS (1)
  1. HUMIRA [Suspect]
     Active Substance: ADALIMUMAB
     Indication: CROHN^S DISEASE
     Route: 058

REACTIONS (10)
  - Cerebrovascular accident [Recovering/Resolving]
  - Crohn^s disease [Unknown]
  - Emotional distress [Recovering/Resolving]
  - White blood cell count increased [Not Recovered/Not Resolved]
  - Lymphoma [Unknown]
  - Memory impairment [Not Recovered/Not Resolved]
  - Chest pain [Unknown]
  - Carotid artery occlusion [Recovering/Resolving]
  - Fatigue [Unknown]
  - Hypertension [Recovering/Resolving]

NARRATIVE: CASE EVENT DATE: 2015
